FAERS Safety Report 5800666-5 (Version None)
Quarter: 2008Q3

REPORT INFORMATION
  Report Type: 
  Country: None (occurrence: None)
  Receive Date: 20080703
  Receipt Date: 20080625
  Transmission Date: 20090109
  Serious: Yes (Death)
  Sender: FDA-Public Use
  Company Number: IR-ROCHE-572414

PATIENT
  Age: 22 Year
  Sex: Male

DRUGS (2)
  1. PEGASYS [Suspect]
     Dosage: FORM: PRE-FILLED SYRINGE
     Route: 065
     Dates: start: 20071101, end: 20080618
  2. COPEGUS [Suspect]
     Route: 065
     Dates: start: 20071101, end: 20080618

REACTIONS (1)
  - CARDIAC DISORDER [None]
